FAERS Safety Report 20333966 (Version 1)
Quarter: 2022Q1

REPORT INFORMATION
  Report Type: Report from Study
  Country: SE (occurrence: SE)
  Receive Date: 20220113
  Receipt Date: 20220113
  Transmission Date: 20220423
  Serious: Yes (Other)
  Sender: FDA-Public Use
  Company Number: SE-BoehringerIngelheim-2018-BI-040348

PATIENT
  Age: 64 Year
  Sex: Female
  Weight: 84 kg

DRUGS (11)
  1. NINTEDANIB [Suspect]
     Active Substance: NINTEDANIB
     Indication: Product used for unknown indication
     Route: 048
     Dates: start: 20180418, end: 20180725
  2. NINTEDANIB [Suspect]
     Active Substance: NINTEDANIB
     Indication: Endometrial cancer
  3. NINTEDANIB [Suspect]
     Active Substance: NINTEDANIB
     Indication: Endometrial cancer recurrent
  4. SUMATRIPTAN [Concomitant]
     Active Substance: SUMATRIPTAN
     Indication: Migraine
     Dosage: DAILY DOSE: 50MG AS NEEDED
     Route: 048
  5. OMEPRAZOLE [Concomitant]
     Active Substance: OMEPRAZOLE
     Indication: Prophylaxis
     Route: 048
     Dates: start: 20180405
  6. ACETAMINOPHEN [Concomitant]
     Active Substance: ACETAMINOPHEN
     Indication: Pain
     Dosage: DAILY DOSE: 1G AS NEEDED
     Route: 048
  7. OXAZEPAM [Concomitant]
     Active Substance: OXAZEPAM
     Indication: Anxiety
     Dosage: DAILY DOSE: 5MG AS NEEDED
     Route: 048
     Dates: start: 20180128
  8. PAPAVERINE [Concomitant]
     Active Substance: PAPAVERINE
     Indication: Gastrointestinal pain
     Dosage: DAILY DOSE: 40MG, 1-3 TAB AS NEEDED
     Route: 048
     Dates: start: 20180611
  9. LOPERAMIDE [Concomitant]
     Active Substance: LOPERAMIDE
     Indication: Diarrhoea
     Dosage: DAILY DOSE: 2MG, 1-3 CAP AS NEEDED
     Route: 048
     Dates: start: 20180405
  10. PACLITAXEL [Concomitant]
     Active Substance: PACLITAXEL
     Indication: Endometrial cancer recurrent
     Route: 042
     Dates: start: 20180418
  11. CARBOPLATIN [Concomitant]
     Active Substance: CARBOPLATIN
     Indication: Endometrial cancer recurrent
     Route: 042
     Dates: start: 20180418

REACTIONS (1)
  - Pulmonary embolism [Recovered/Resolved]

NARRATIVE: CASE EVENT DATE: 20180711
